FAERS Safety Report 16849697 (Version 1)
Quarter: 2019Q3

REPORT INFORMATION
  Report Type: Spontaneous
  Country: US (occurrence: US)
  Receive Date: 20190803
  Receipt Date: 20190803
  Transmission Date: 20191005
  Serious: No
  Sender: FDA-Public Use
  Company Number: None

PATIENT
  Age: 67 Year
  Sex: Female

DRUGS (1)
  1. GLATIRAMER 40MG PFS INJ (12/BOX) [Suspect]
     Active Substance: GLATIRAMER
     Route: 058
     Dates: start: 201908

REACTIONS (4)
  - Injection site reaction [None]
  - Product substitution issue [None]
  - Diarrhoea [None]
  - Injection site vesicles [None]

NARRATIVE: CASE EVENT DATE: 20190803
